FAERS Safety Report 7225063-X (Version None)
Quarter: 2011Q1

REPORT INFORMATION
  Report Type: 
  Country: None (occurrence: None)
  Receive Date: 20110104
  Receipt Date: 20101222
  Transmission Date: 20110831
  Serious: Yes (Other)
  Sender: FDA-Public Use
  Company Number: 024350

PATIENT
  Sex: Female

DRUGS (1)
  1. KEPPRA [Suspect]
     Dosage: (2500 MG)
     Dates: start: 20070101

REACTIONS (3)
  - ABORTION SPONTANEOUS [None]
  - UTERINE DISORDER [None]
  - DRUG EXPOSURE DURING PREGNANCY [None]
